FAERS Safety Report 10189905 (Version 1)
Quarter: 2014Q2

REPORT INFORMATION
  Report Type: Spontaneous
  Country: DE (occurrence: DE)
  Receive Date: 20140522
  Receipt Date: 20140522
  Transmission Date: 20141212
  Serious: Yes (Other)
  Sender: FDA-Public Use
  Company Number: DE-ASTRAZENECA-2014SE34423

PATIENT
  Age: 59 Year
  Sex: Female

DRUGS (9)
  1. SEROQUEL [Suspect]
     Indication: DEPRESSION
     Route: 048
     Dates: start: 20131104, end: 20131105
  2. SEROQUEL [Interacting]
     Indication: DEPRESSION
     Route: 048
     Dates: start: 20131106, end: 20131106
  3. MIRTAZAPIN [Interacting]
     Indication: DEPRESSION
     Route: 048
     Dates: start: 201310, end: 20131110
  4. MIRTAZAPIN [Interacting]
     Indication: DEPRESSION
     Route: 048
     Dates: start: 20131111, end: 20131117
  5. MIRTAZAPIN [Interacting]
     Indication: DEPRESSION
     Route: 048
     Dates: start: 20131118, end: 20131121
  6. DOMINAL [Interacting]
     Route: 048
     Dates: start: 20131103, end: 20131103
  7. DOMINAL [Interacting]
     Route: 048
     Dates: start: 20131105, end: 20131105
  8. DOMINAL [Interacting]
     Route: 048
     Dates: start: 20131106, end: 20131106
  9. ESTRADIOL [Concomitant]
     Route: 048

REACTIONS (2)
  - Drug interaction [Recovered/Resolved]
  - Supraventricular tachycardia [Recovered/Resolved]
